FAERS Safety Report 10150516 (Version 2)
Quarter: 2014Q2

REPORT INFORMATION
  Report Type: Spontaneous
  Country: AU (occurrence: AU)
  Receive Date: 20140502
  Receipt Date: 20140513
  Transmission Date: 20141212
  Serious: Yes (Other)
  Sender: FDA-Public Use
  Company Number: PHHY2014AU052740

PATIENT
  Sex: Male

DRUGS (4)
  1. ACLASTA [Suspect]
     Dosage: 5 MG, UNK
     Route: 042
  2. ACLASTA [Suspect]
     Dosage: 5 MG, UNK
     Route: 042
  3. ACLASTA [Suspect]
     Dosage: 5 MG, UNK
     Route: 042
  4. ACLASTA [Suspect]
     Dosage: 5 MG, UNK
     Route: 042

REACTIONS (8)
  - Gait disturbance [Unknown]
  - Dementia [Unknown]
  - Pain in extremity [Unknown]
  - Herpes zoster [Unknown]
  - Dyspnoea [Unknown]
  - Palpitations [Unknown]
  - Arthritis [Unknown]
  - Pain [Unknown]
